FAERS Safety Report 21280175 (Version 3)
Quarter: 2022Q3

REPORT INFORMATION
  Report Type: Spontaneous
  Country: GB (occurrence: GB)
  Receive Date: 20220901
  Receipt Date: 20220905
  Transmission Date: 20221026
  Serious: Yes (Death, Hospitalization, Other)
  Sender: FDA-Public Use
  Company Number: GB-009507513-2206GBR008144

PATIENT
  Age: 54 Year
  Sex: Female
  Weight: 60 kg

DRUGS (1)
  1. PEMBROLIZUMAB [Suspect]
     Active Substance: PEMBROLIZUMAB
     Indication: Lung adenocarcinoma
     Dosage: UNK UNK, Q3W
     Dates: start: 20190809

REACTIONS (44)
  - Acute abdomen [Fatal]
  - Arteritis [Fatal]
  - Cardiac arrest [Fatal]
  - Cardiac arrest [Fatal]
  - Hypertension [Fatal]
  - Intestinal ischaemia [Fatal]
  - Malignant neoplasm progression [Fatal]
  - Paraneoplastic syndrome [Fatal]
  - Polyarteritis nodosa [Fatal]
  - Renal infarct [Fatal]
  - Vasculitis gastrointestinal [Fatal]
  - Acute kidney injury [Unknown]
  - Anaemia [Unknown]
  - Cholecystitis [Unknown]
  - Hypokalaemia [Recovering/Resolving]
  - Ileus [Unknown]
  - Antiphospholipid antibodies positive [Unknown]
  - Appetite disorder [Unknown]
  - Blood creatine phosphokinase abnormal [Unknown]
  - Blood pressure difference of extremities [Unknown]
  - Brain natriuretic peptide abnormal [Unknown]
  - Cardiac disorder [Unknown]
  - C-reactive protein increased [Unknown]
  - Dyspepsia [Unknown]
  - Eosinophil count increased [Unknown]
  - Eosinophil count abnormal [Recovered/Resolved]
  - Haemoglobin decreased [Unknown]
  - Hypoglycaemia [Unknown]
  - Hypophagia [Unknown]
  - Liver function test abnormal [Unknown]
  - Musculoskeletal pain [Unknown]
  - Neutrophil count increased [Unknown]
  - Oxygen saturation decreased [Unknown]
  - Physical deconditioning [Unknown]
  - Positron emission tomogram abnormal [Unknown]
  - Renal vessel disorder [Unknown]
  - Retching [Unknown]
  - Supraventricular tachycardia [Recovered/Resolved]
  - Troponin abnormal [Unknown]
  - Vomiting [Recovered/Resolved]
  - Vomiting [Unknown]
  - Weight decreased [Unknown]
  - Proteinuria [Unknown]
  - Anxiety [Unknown]

NARRATIVE: CASE EVENT DATE: 20210101
